FAERS Safety Report 25848556 (Version 1)
Quarter: 2025Q3

REPORT INFORMATION
  Report Type: Spontaneous
  Country: EU (occurrence: EU)
  Receive Date: 20250925
  Receipt Date: 20250925
  Transmission Date: 20251020
  Serious: Yes (Other)
  Sender: JOHNSON AND JOHNSON
  Company Number: EU-BAYER-2025A125161

PATIENT
  Sex: Male

DRUGS (2)
  1. XARELTO [Suspect]
     Active Substance: RIVAROXABAN
     Indication: Deep vein thrombosis
  2. XARELTO [Suspect]
     Active Substance: RIVAROXABAN
     Indication: Arthralgia

REACTIONS (2)
  - Carpal tunnel syndrome [Unknown]
  - Intentional product use issue [Unknown]
